FAERS Safety Report 7044844-9 (Version None)
Quarter: 2010Q4

REPORT INFORMATION
  Report Type: 
  Country: None (occurrence: None)
  Receive Date: 20101014
  Receipt Date: 20101004
  Transmission Date: 20110411
  Serious: Yes (Other)
  Sender: FDA-Public Use
  Company Number: PHHY2010CA66255

PATIENT
  Sex: Female

DRUGS (8)
  1. ALISKIREN ALI+ [Suspect]
     Dosage: 150 MG, UNK
     Route: 048
     Dates: start: 20100201, end: 20100728
  2. AVALIDE [Concomitant]
     Dosage: 150/12.5 (UNSPECIFIED UNITS)
     Dates: start: 20090101
  3. LIPITOR [Concomitant]
     Dosage: 40 (UNSPECIFIED UNITS)
     Dates: start: 20060101
  4. LYRICA [Concomitant]
     Dosage: 75 (UNSPECIFIED UNITS)
     Dates: start: 20090101
  5. METFORMIN [Concomitant]
     Dosage: 850 (UNSPECIFIED UNITS) TID
     Dates: start: 19960101
  6. SAXAGLIPTIN [Concomitant]
  7. GLYBURIDE [Concomitant]
     Dosage: 10 (UNSPECIFIED UNIYS) BID
     Dates: start: 19980101
  8. SYNTHROID [Concomitant]
     Dosage: 0.08 (UNSPECIFIED UNITS)
     Dates: start: 19880101

REACTIONS (2)
  - BLOOD PRESSURE SYSTOLIC DECREASED [None]
  - DIZZINESS [None]
